FAERS Safety Report 21900067 (Version 1)
Quarter: 2023Q1

REPORT INFORMATION
  Report Type: Spontaneous
  Country: US (occurrence: None)
  Receive Date: 20230123
  Receipt Date: 20230123
  Transmission Date: 20230418
  Serious: No
  Sender: FDA-Public Use
  Company Number: None

PATIENT
  Sex: Female

DRUGS (1)
  1. DAURISMO [Suspect]
     Active Substance: GLASDEGIB
     Indication: Acute myeloid leukaemia
     Dosage: FREQUENCY : DAILY;?
     Route: 048
     Dates: start: 20220613

REACTIONS (8)
  - Product use complaint [None]
  - Hyporeflexia [None]
  - Stress [None]
  - Product residue present [None]
  - Taste disorder [None]
  - Depression [None]
  - Death of relative [None]
  - Hypophagia [None]
